FAERS Safety Report 8589062-8 (Version None)
Quarter: 2012Q3

REPORT INFORMATION
  Report Type: 
  Country: None (occurrence: None)
  Receive Date: 20120813
  Receipt Date: 20120801
  Transmission Date: 20120928
  Serious: Yes (Other)
  Sender: FDA-Public Use
  Company Number: MX-SANOFI-AVENTIS-2012SA055298

PATIENT
  Age: 64 Year
  Sex: Female

DRUGS (4)
  1. METHOTREXATE [Concomitant]
     Indication: RHEUMATOID ARTHRITIS
     Dosage: (1 TABLET EVERY 12 HOURS ON SATURDAY AND 1 TABLET EVERY 12 HOURS ON SUNDAY)
  2. ARAVA [Suspect]
     Route: 048
     Dates: start: 20120201
  3. CELEBREX [Concomitant]
     Indication: RHEUMATOID ARTHRITIS
  4. ARAVA [Suspect]
     Indication: RHEUMATOID ARTHRITIS
     Route: 048
     Dates: start: 20020101, end: 20120201

REACTIONS (7)
  - HYPERTENSION [None]
  - HYPERCHOLESTEROLAEMIA [None]
  - CALCIUM METABOLISM DISORDER [None]
  - WOUND DEHISCENCE [None]
  - HYPERGLYCAEMIA [None]
  - SURGERY [None]
  - INAPPROPRIATE SCHEDULE OF DRUG ADMINISTRATION [None]
